FAERS Safety Report 7294616-5 (Version None)
Quarter: 2011Q1

REPORT INFORMATION
  Report Type: 
  Country: None (occurrence: None)
  Receive Date: 20110216
  Receipt Date: 20091005
  Transmission Date: 20110831
  Serious: No
  Sender: FDA-Public Use
  Company Number: 2009BI032049

PATIENT
  Sex: Female

DRUGS (1)
  1. TYSABRI [Suspect]
     Indication: MULTIPLE SCLEROSIS
     Route: 042
     Dates: start: 20090814, end: 20100914

REACTIONS (6)
  - CYSTITIS [None]
  - MUSCULOSKELETAL STIFFNESS [None]
  - DYSPNOEA [None]
  - SENSATION OF HEAVINESS [None]
  - URINARY TRACT INFECTION [None]
  - HYPERTONIC BLADDER [None]
